FAERS Safety Report 20755964 (Version 14)
Quarter: 2024Q2

REPORT INFORMATION
  Report Type: Spontaneous
  Country: JP (occurrence: JP)
  Receive Date: 20220427
  Receipt Date: 20240617
  Transmission Date: 20240716
  Serious: Yes (Life-Threatening, Hospitalization, Other)
  Sender: FDA-Public Use
  Company Number: JP-BRISTOL-MYERS SQUIBB COMPANY-2022-025622

PATIENT
  Age: 81 Year
  Sex: Male

DRUGS (8)
  1. YERVOY [Suspect]
     Active Substance: IPILIMUMAB
     Indication: Malignant melanoma
     Route: 041
     Dates: start: 20220218, end: 20220218
  2. YERVOY [Suspect]
     Active Substance: IPILIMUMAB
     Route: 041
     Dates: start: 20220322, end: 20220322
  3. YERVOY [Suspect]
     Active Substance: IPILIMUMAB
     Route: 041
     Dates: start: 20220415, end: 20220415
  4. OPDIVO [Suspect]
     Active Substance: NIVOLUMAB
     Indication: Malignant melanoma
     Route: 041
     Dates: start: 20210701
  5. OPDIVO [Suspect]
     Active Substance: NIVOLUMAB
     Route: 041
     Dates: start: 20220218, end: 20220218
  6. OPDIVO [Suspect]
     Active Substance: NIVOLUMAB
     Route: 041
     Dates: start: 20220322, end: 20220322
  7. OPDIVO [Suspect]
     Active Substance: NIVOLUMAB
     Route: 041
     Dates: start: 20220415, end: 20220415
  8. PEMBROLIZUMAB [Suspect]
     Active Substance: PEMBROLIZUMAB
     Indication: Malignant melanoma
     Dates: start: 20220511

REACTIONS (12)
  - Immune-mediated hypophysitis [Recovering/Resolving]
  - Immune-mediated lung disease [Recovering/Resolving]
  - Pyrexia [Unknown]
  - Blood pressure decreased [Recovered/Resolved]
  - Septic shock [Unknown]
  - Lymphadenopathy [Unknown]
  - Vascular compression [Unknown]
  - Dizziness [Unknown]
  - Pulmonary tuberculosis [Unknown]
  - Pneumonia [Unknown]
  - Polymyalgia rheumatica [Unknown]
  - Interferon gamma release assay positive [Unknown]

NARRATIVE: CASE EVENT DATE: 20220310
